FAERS Safety Report 10195401 (Version 3)
Quarter: 2014Q2

REPORT INFORMATION
  Report Type: Spontaneous
  Country: GB (occurrence: GB)
  Receive Date: 20140526
  Receipt Date: 20140617
  Transmission Date: 20141212
  Serious: Yes (Other)
  Sender: FDA-Public Use
  Company Number: PHFR2014GB002780

PATIENT
  Age: 66 Year
  Sex: Male

DRUGS (8)
  1. CLOZARIL [Suspect]
     Indication: SCHIZOPHRENIA
     Dosage: 6.25 MG, DAILY
     Route: 048
     Dates: start: 20140401, end: 20140414
  2. CLOZARIL [Suspect]
     Indication: PSYCHOTIC DISORDER
  3. QUETIAPINE [Concomitant]
     Indication: PSYCHOTIC DISORDER
     Dosage: 1125 MG, DAILY
     Route: 048
     Dates: start: 201312
  4. CITALOPRAM [Concomitant]
     Indication: DEPRESSION
     Dosage: 20 MG, DAILY
     Route: 048
  5. RIVASTIGMINE [Concomitant]
     Indication: DEMENTIA WITH LEWY BODIES
     Dosage: 9.5 MG PER 24 HOURS
     Route: 062
  6. CLONAZEPAM [Concomitant]
     Indication: AGITATION
     Dosage: 0.5 MG, DAILY
     Route: 048
  7. CLONAZEPAM [Concomitant]
     Indication: ANXIETY
  8. TAMSULOSIN [Concomitant]
     Dosage: 400 UG, DAILY
     Route: 048

REACTIONS (5)
  - Parkinson^s disease [Unknown]
  - Dementia [Unknown]
  - Neutrophil count decreased [Not Recovered/Not Resolved]
  - White blood cell count decreased [Recovered/Resolved]
  - Platelet count decreased [Recovered/Resolved]
